FAERS Safety Report 26082595 (Version 1)
Quarter: 2025Q4

REPORT INFORMATION
  Report Type: Spontaneous
  Country: US (occurrence: None)
  Receive Date: 20251121
  Receipt Date: 20251121
  Transmission Date: 20260118
  Serious: Yes (Death)
  Sender: FDA-CTU
  Company Number: None

PATIENT
  Age: 71 Year
  Sex: Male

DRUGS (3)
  1. ISENTRESS [Suspect]
     Active Substance: RALTEGRAVIR POTASSIUM
     Indication: HIV infection
     Dosage: 400  MG BID ORAL ?
     Route: 048
     Dates: start: 20240731, end: 20251107
  2. ETRAVIRINE [Suspect]
     Active Substance: ETRAVIRINE
     Indication: HIV infection
     Dosage: 200 MG BID ORAL ?
     Route: 048
     Dates: start: 20240731, end: 20251107
  3. LAMIVUDINE [Suspect]
     Active Substance: LAMIVUDINE

REACTIONS (2)
  - Condition aggravated [None]
  - Infection [None]

NARRATIVE: CASE EVENT DATE: 20251107
